FAERS Safety Report 26189122 (Version 1)
Quarter: 2025Q4

REPORT INFORMATION
  Report Type: Spontaneous
  Country: US (occurrence: US)
  Receive Date: 20251223
  Receipt Date: 20251223
  Transmission Date: 20260118
  Serious: Yes (Life-Threatening, Other)
  Sender: TWI PHARMACEUTICALS
  Company Number: US-TWI PHARMACEUTICAL, INC-20251201599

PATIENT
  Age: 19 Year

DRUGS (1)
  1. BUPROPION HYDROCHLORIDE XL [Suspect]
     Active Substance: BUPROPION HYDROCHLORIDE
     Indication: Product used for unknown indication
     Dosage: 60 DOSAGE FORM
     Route: 065

REACTIONS (10)
  - Apnoea [Unknown]
  - Hallucination, visual [Unknown]
  - Hypotension [Unknown]
  - Loss of consciousness [Unknown]
  - Intentional overdose [Unknown]
  - Electrocardiogram abnormal [Unknown]
  - Nausea [Unknown]
  - Vomiting [Unknown]
  - Tremor [Unknown]
  - Agitation [Unknown]
